FAERS Safety Report 8106250-5 (Version None)
Quarter: 2011Q4

REPORT INFORMATION
  Report Type: 
  Country: None (occurrence: None)
  Receive Date: 20111222
  Receipt Date: 20111031
  Transmission Date: 20120403
  Serious: Yes (Death, Other)
  Sender: FDA-Public Use
  Company Number: UTC-011783

PATIENT
  Age: 72 Year
  Sex: Female
  Weight: 59.54 kg

DRUGS (4)
  1. ASPIRIN [Concomitant]
  2. TYVASO [Suspect]
     Indication: PULMONARY ARTERIAL HYPERTENSION
     Dosage: 216 MCG (54 MCG,4 IN 1 D),INHALATION
     Route: 055
     Dates: start: 20110607
  3. REVATIO [Concomitant]
  4. DIURETICS (DIURETICS) [Concomitant]

REACTIONS (2)
  - DEATH [None]
  - NON-SMALL CELL LUNG CANCER [None]
